FAERS Safety Report 8468854-X (Version None)
Quarter: 2012Q2

REPORT INFORMATION
  Report Type: 
  Country: None (occurrence: None)
  Receive Date: 20120626
  Receipt Date: 20101207
  Transmission Date: 20120825
  Serious: Yes (Other)
  Sender: FDA-Public Use
  Company Number: US-ROCHE-747531

PATIENT
  Sex: Female
  Weight: 51.7 kg

DRUGS (4)
  1. BONIVA [Suspect]
     Indication: OSTEOPOROSIS
     Route: 048
  2. ASPIRIN [Concomitant]
  3. BONIVA [Suspect]
     Route: 048
     Dates: start: 20080101, end: 20101201
  4. CALTRATE + D [Concomitant]

REACTIONS (1)
  - OSTEOMYELITIS [None]
